FAERS Safety Report 8762011 (Version 1)
Quarter: 2012Q4

REPORT INFORMATION
  Report Type: 
  Country: US (occurrence: US)
  Receive Date: 20120830
  Receipt Date: 20120830
  Transmission Date: 20130627
  Serious: Yes (Other)
  Sender: FDA-Public Use
  Company Number: US-PFIZER INC-2012208743

PATIENT
  Age: 62 Year
  Sex: Female
  Weight: 72.56 kg

DRUGS (2)
  1. GENOTROPIN [Suspect]
     Indication: GROWTH HORMONE DEFICIENCY
     Dosage: UNK
     Dates: start: 2007, end: 201207
  2. SYNTHROID [Concomitant]
     Indication: THYROID DISORDER
     Dosage: 75 ug, daily

REACTIONS (3)
  - Upper limb fracture [Unknown]
  - Fall [Unknown]
  - Pain [Unknown]
